FAERS Safety Report 14301432 (Version 2)
Quarter: 2018Q1

REPORT INFORMATION
  Report Type: Spontaneous
  Country: US (occurrence: US)
  Receive Date: 20171219
  Receipt Date: 20180110
  Transmission Date: 20180509
  Serious: Yes (Other)
  Sender: FDA-Public Use
  Company Number: US-AMGEN-USASP2017174556

PATIENT
  Age: 65 Year
  Sex: Female
  Weight: 63.39 kg

DRUGS (1)
  1. PROLIA [Suspect]
     Active Substance: DENOSUMAB
     Indication: OSTEOPOROSIS POSTMENOPAUSAL
     Dosage: 60 MG, Q6MO
     Route: 058
     Dates: start: 201405

REACTIONS (6)
  - Tooth abscess [Unknown]
  - Gingival abscess [Unknown]
  - Toothache [Recovered/Resolved]
  - Erythema [Unknown]
  - Pain in jaw [Recovered/Resolved]
  - Osteitis [Recovered/Resolved]

NARRATIVE: CASE EVENT DATE: 20171120
